FAERS Safety Report 13673148 (Version 2)
Quarter: 2017Q4

REPORT INFORMATION
  Report Type: Report from Study
  Country: CO (occurrence: CO)
  Receive Date: 20170621
  Receipt Date: 20171129
  Transmission Date: 20180320
  Serious: Yes (Other)
  Sender: FDA-Public Use
  Company Number: CO-ASTELLAS-2017US024427

PATIENT
  Sex: Male

DRUGS (1)
  1. TACROLIMUS. [Suspect]
     Active Substance: TACROLIMUS
     Indication: RENAL TRANSPLANT
     Dosage: 2 MG, ONCE DAILY (2 CAPSULES OF 1MG)
     Route: 048
     Dates: start: 20141227

REACTIONS (3)
  - Abdominal pain [Recovering/Resolving]
  - Urinary tract infection [Recovering/Resolving]
  - Vesicoureteric reflux [Recovering/Resolving]
